FAERS Safety Report 5287929-X (Version None)
Quarter: 2007Q1

REPORT INFORMATION
  Report Type: 
  Country: None (occurrence: None)
  Receive Date: 20070330
  Receipt Date: 20070323
  Transmission Date: 20070707
  Serious: Yes (Hospitalization)
  Sender: FDA-Public Use
  Company Number: 2007SP000966

PATIENT
  Sex: Female
  Weight: 68.0396 kg

DRUGS (6)
  1. LUNESTA [Suspect]
     Indication: INSOMNIA
     Dosage: 2 MG; HS; ORAL
     Route: 048
     Dates: start: 20070201
  2. KADIAN [Suspect]
     Indication: PAIN
     Dosage: 80 MG; BID; ORAL
     Route: 048
     Dates: start: 20070221, end: 20070223
  3. EFFEXOR [Suspect]
     Indication: DEPRESSION
     Dosage: ORAL
     Route: 048
  4. OXYCODONE HCL [Suspect]
     Indication: PAIN
  5. NORCO [Concomitant]
  6. NEURONTIN [Concomitant]

REACTIONS (13)
  - BLOOD GLUCOSE INCREASED [None]
  - CHILLS [None]
  - COMA [None]
  - DEHYDRATION [None]
  - FATIGUE [None]
  - HEADACHE [None]
  - HYPOVENTILATION [None]
  - HYPOXIA [None]
  - LETHARGY [None]
  - MULTIPLE DRUG OVERDOSE [None]
  - RESPIRATORY ARREST [None]
  - SINUS ARRHYTHMIA [None]
  - WHITE BLOOD CELL COUNT INCREASED [None]
